FAERS Safety Report 6189390-X (Version None)
Quarter: 2009Q2

REPORT INFORMATION
  Report Type: 
  Country: None (occurrence: None)
  Receive Date: 20090512
  Receipt Date: 20090430
  Transmission Date: 20091009
  Serious: Yes (Death, Hospitalization)
  Sender: FDA-Public Use
  Company Number: 2008001211

PATIENT
  Age: 47 Year
  Sex: Female

DRUGS (11)
  1. ERLOTINIB           (ERLOTINIB) (TABLET) (ERLOTINIB) [Suspect]
     Indication: PANCREATIC CARCINOMA
     Dosage: ORAL
     Route: 048
     Dates: start: 20071129
  2. GEMCITABINE [Suspect]
     Dosage: INTRAVENOUS
     Route: 042
  3. BEVACIZUMAB         (INJECTION FOR INFUSION) [Suspect]
     Dosage: INTRAVENOUS
     Route: 042
  4. CAPECITABINE       (INJECTION FOR INFUSION) [Suspect]
     Dosage: INTRAVENOUS
     Route: 042
  5. CREON [Concomitant]
  6. LANSOPRAZOLE [Concomitant]
  7. METOCLOPRAMIDE [Concomitant]
  8. ASPIRIN [Concomitant]
  9. BISOPROLOL FUMARATE [Concomitant]
  10. NOVAPID [Concomitant]
  11. INSULIN GLARGINE (INSULIN GLARGINE) [Concomitant]

REACTIONS (12)
  - ABDOMINAL ADHESIONS [None]
  - ABSCESS [None]
  - DISEASE PROGRESSION [None]
  - GENERAL PHYSICAL HEALTH DETERIORATION [None]
  - HYPERTENSION [None]
  - HYPOXIA [None]
  - INTESTINAL ANASTOMOSIS COMPLICATION [None]
  - NAUSEA [None]
  - SMALL INTESTINAL OBSTRUCTION [None]
  - TACHYCARDIA [None]
  - VOMITING [None]
  - WOUND COMPLICATION [None]
